FAERS Safety Report 23494903 (Version 1)
Quarter: 2024Q1

REPORT INFORMATION
  Report Type: Spontaneous
  Country: CN (occurrence: CN)
  Receive Date: 20240207
  Receipt Date: 20240207
  Transmission Date: 20240410
  Serious: Yes (Other)
  Sender: FDA-Public Use
  Company Number: CN-SANDOZ-SDZ2024CN012102

PATIENT
  Age: 78 Year
  Sex: Male
  Weight: 50 kg

DRUGS (1)
  1. VORICONAZOLE [Suspect]
     Active Substance: VORICONAZOLE
     Indication: Aspergillus infection
     Dosage: 400 MG
     Route: 048
     Dates: start: 20240130

REACTIONS (10)
  - Cerebral atrophy [Recovering/Resolving]
  - Lacunar infarction [Recovering/Resolving]
  - Hallucination [Recovering/Resolving]
  - Logorrhoea [Recovering/Resolving]
  - Mental disorder [Recovering/Resolving]
  - Mood swings [Recovering/Resolving]
  - Violence-related symptom [Recovering/Resolving]
  - Disorganised speech [Recovering/Resolving]
  - White matter lesion [Recovering/Resolving]
  - Chronic sinusitis [Recovering/Resolving]

NARRATIVE: CASE EVENT DATE: 20240101
